FAERS Safety Report 12450133 (Version 1)
Quarter: 2016Q2

REPORT INFORMATION
  Report Type: Spontaneous
  Country: US (occurrence: US)
  Receive Date: 20160609
  Receipt Date: 20160609
  Transmission Date: 20160815
  Serious: No
  Sender: FDA-Public Use
  Company Number: US-GLENMARK PHARMACEUTICALS INC, USA.-2015GMK019186

PATIENT

DRUGS (4)
  1. NORETHINDRONE TABLETS 0.35MG (AB2) [Suspect]
     Active Substance: NORETHINDRONE
     Indication: CONTRACEPTION
     Dosage: 0.35 MG, BID,ONCE IN THE MORNING AND ONCE AT NIGHT.
     Route: 048
     Dates: start: 20150823, end: 20150823
  2. THYROID HORMONES [Concomitant]
     Active Substance: UNSPECIFIED INGREDIENT
     Indication: HYPOTHYROIDISM
     Dosage: UNK UNK, QD
     Route: 048
  3. NORETHINDRONE TABLETS 0.35MG (AB2) [Suspect]
     Active Substance: NORETHINDRONE
     Indication: DYSMENORRHOEA
     Dosage: 0.35 MG, QD
     Route: 048
     Dates: start: 20150514, end: 20150802
  4. NALTREXONE [Concomitant]
     Active Substance: NALTREXONE
     Indication: IMMUNISATION
     Dosage: UNK

REACTIONS (6)
  - Drug ineffective [Unknown]
  - Dysuria [Not Recovered/Not Resolved]
  - Ovarian cyst [Recovering/Resolving]
  - Neck pain [Recovering/Resolving]
  - Off label use [Unknown]
  - Pelvic pain [Recovering/Resolving]

NARRATIVE: CASE EVENT DATE: 20150514
